FAERS Safety Report 4290034-2 (Version None)
Quarter: 2004Q1

REPORT INFORMATION
  Report Type: 
  Country: None (occurrence: None)
  Receive Date: 20040206
  Receipt Date: 20040127
  Transmission Date: 20041129
  Serious: Yes (Other)
  Sender: FDA-Public Use
  Company Number: A-CH2004-04134

PATIENT
  Age: 42 Year
  Sex: Female

DRUGS (11)
  1. TRACLEER [Suspect]
     Indication: PULMONARY HYPERTENSION
     Dosage: SEE IMAGE ORAL
     Route: 048
     Dates: start: 20030919, end: 20031016
  2. TRACLEER [Suspect]
     Indication: PULMONARY HYPERTENSION
     Dosage: SEE IMAGE ORAL
     Route: 048
     Dates: start: 20031017, end: 20031217
  3. TRACLEER [Suspect]
     Indication: PULMONARY HYPERTENSION
     Dosage: SEE IMAGE ORAL
     Route: 048
     Dates: start: 20031218, end: 20031223
  4. TRACLEER [Suspect]
     Indication: PULMONARY HYPERTENSION
     Dosage: SEE IMAGE ORAL
     Route: 048
     Dates: start: 20031230, end: 20040114
  5. ILOPROST (ILOPROST) [Concomitant]
  6. FUROSEMIDE [Concomitant]
  7. OMEPRAZOLE [Concomitant]
  8. HORMONIN (ESTRADIOL, ESTRONE, ESTRIOL) [Concomitant]
  9. PRAVASTATIN [Concomitant]
  10. PAROXETINE HCL [Concomitant]
  11. WARFARIN SODIUM [Concomitant]

REACTIONS (4)
  - ALANINE AMINOTRANSFERASE INCREASED [None]
  - ASPARTATE AMINOTRANSFERASE INCREASED [None]
  - BLOOD ALKALINE PHOSPHATASE INCREASED [None]
  - BLOOD BILIRUBIN INCREASED [None]
